FAERS Safety Report 8991057 (Version 1)
Quarter: 2012Q4

REPORT INFORMATION
  Report Type: Spontaneous
  Country: US (occurrence: None)
  Receive Date: 20121220
  Receipt Date: 20121220
  Transmission Date: 20130627
  Serious: Yes (Other)
  Sender: FDA-Public Use
  Company Number: USA/USA/12/0027013

PATIENT
  Sex: Female

DRUGS (1)
  1. SECTRAL [Suspect]
     Indication: ARRHYTHMIA
     Route: 048

REACTIONS (3)
  - Ventricular extrasystoles [None]
  - Condition aggravated [None]
  - Product quality issue [None]
